FAERS Safety Report 9336019 (Version 1)
Quarter: 2013Q2

REPORT INFORMATION
  Report Type: Spontaneous
  Country: JP (occurrence: JP)
  Receive Date: 20130607
  Receipt Date: 20130607
  Transmission Date: 20140414
  Serious: Yes (Other)
  Sender: FDA-Public Use
  Company Number: JP-BIOGENIDEC-2007BI014304

PATIENT
  Age: 34 Year
  Sex: Female

DRUGS (1)
  1. AVONEX [Suspect]
     Indication: RELAPSING-REMITTING MULTIPLE SCLEROSIS
     Route: 030
     Dates: start: 20070322, end: 20070625

REACTIONS (4)
  - Altered state of consciousness [Recovered/Resolved]
  - Cardiac arrest [Recovered/Resolved]
  - Convulsion [Recovered/Resolved]
  - Multiple sclerosis relapse [Recovered/Resolved]
